FAERS Safety Report 10487687 (Version 1)
Quarter: 2014Q4

REPORT INFORMATION
  Report Type: Spontaneous
  Country: BR (occurrence: BR)
  Receive Date: 20141001
  Receipt Date: 20141001
  Transmission Date: 20150528
  Serious: Yes (Other)
  Sender: FDA-Public Use
  Company Number: BR-PFIZER INC-2014269415

PATIENT
  Age: 52 Year
  Sex: Female
  Weight: 89 kg

DRUGS (6)
  1. COLLYRIUM [Concomitant]
     Indication: LACRIMATION DECREASED
     Dosage: DAILY
     Route: 047
     Dates: start: 2010
  2. COLLYRIUM [Concomitant]
     Indication: EYE PAIN
  3. TENSALIV [Concomitant]
     Dosage: 10 MG, UNK
     Route: 048
  4. ATENOLOL. [Suspect]
     Active Substance: ATENOLOL
     Dosage: 100 MG, DAILY
     Route: 048
  5. ATACAND [Suspect]
     Active Substance: CANDESARTAN CILEXETIL
     Indication: HYPERTENSION
     Dosage: 16 MG, DAILY
     Route: 048
     Dates: start: 2010
  6. COLLYRIUM [Concomitant]
     Indication: VISUAL IMPAIRMENT

REACTIONS (6)
  - Device dislocation [Not Recovered/Not Resolved]
  - Eye pain [Not Recovered/Not Resolved]
  - Lacrimation decreased [Not Recovered/Not Resolved]
  - Cataract [Recovered/Resolved]
  - Cataract [Recovered/Resolved]
  - Visual impairment [Not Recovered/Not Resolved]

NARRATIVE: CASE EVENT DATE: 2010
